FAERS Safety Report 4959157-6 (Version None)
Quarter: 2006Q1

REPORT INFORMATION
  Report Type: 
  Country: None (occurrence: None)
  Receive Date: 20060330
  Receipt Date: 20060330
  Transmission Date: 20060701
  Serious: Yes (Hospitalization)
  Sender: FDA-Public Use
  Company Number: None

PATIENT
  Age: 83 Year
  Sex: Male
  Weight: 60 kg

DRUGS (5)
  1. PIPERACILLIN AND TAZOBACTAM [Suspect]
     Indication: FEBRILE NEUTROPENIA
     Dosage: 2.25 GM Q6 HR IV BOLUS
     Route: 040
     Dates: start: 20040907, end: 20040908
  2. CEFTAZIDIME [Suspect]
     Indication: FEBRILE NEUTROPENIA
     Dosage: 1 GM Q12 HR IV BOLUS
     Route: 040
     Dates: start: 20040908, end: 20040909
  3. TYLENOL (CAPLET) [Concomitant]
  4. ITRACONAZOLE [Concomitant]
  5. PANTOPRAZOLE [Concomitant]

REACTIONS (9)
  - AGITATION [None]
  - DYSPHAGIA [None]
  - ERYTHEMA [None]
  - GASTROINTESTINAL HAEMORRHAGE [None]
  - HAEMATEMESIS [None]
  - HYPOTENSION [None]
  - OESOPHAGEAL CANDIDIASIS [None]
  - RENAL FAILURE ACUTE [None]
  - TONGUE OEDEMA [None]
